FAERS Safety Report 9270562 (Version 2)
Quarter: 2013Q2

REPORT INFORMATION
  Report Type: Report from Study
  Country: DE (occurrence: DE)
  Receive Date: 20130506
  Receipt Date: 20130603
  Transmission Date: 20140414
  Serious: Yes (Hospitalization, Other)
  Sender: FDA-Public Use
  Company Number: PHHO2013DE005857

PATIENT
  Age: 66 Year
  Sex: Male
  Weight: 87 kg

DRUGS (13)
  1. CARBOPLATIN [Suspect]
     Indication: NEUROENDOCRINE TUMOUR
     Dosage: 655 MG, UNK
     Route: 065
     Dates: start: 20130423, end: 20130423
  2. AFINITOR [Suspect]
     Indication: NEUROENDOCRINE TUMOUR
     Dosage: 5 MG, QD
     Route: 048
     Dates: start: 20130423, end: 20130513
  3. AFINITOR [Suspect]
     Dosage: 5 MG, QD
     Route: 048
     Dates: start: 20130521
  4. PACLITAXEL [Concomitant]
     Indication: NEUROENDOCRINE TUMOUR
     Dosage: 388 MG, UNK
     Route: 065
     Dates: start: 20130423, end: 20130423
  5. PANTOZOL [Concomitant]
     Indication: PROPHYLAXIS
     Dosage: 40 MG, UNK
     Route: 065
  6. SIMVASTATIN [Concomitant]
     Indication: HYPERCHOLESTEROLAEMIA
     Dosage: 40 MG, UNK
     Route: 065
  7. METOPROLOL [Concomitant]
     Indication: HYPERTENSION
     Dosage: 47.5 MG, UNK
     Route: 065
  8. SPIRIVA [Concomitant]
     Indication: CHRONIC OBSTRUCTIVE PULMONARY DISEASE
     Dosage: 18 MG, UNK
     Route: 065
  9. FORMOTEROL [Concomitant]
     Dosage: 12 MG, UNK
     Route: 065
  10. HUMALOG [Concomitant]
     Indication: DIABETES MELLITUS
     Dosage: UNK
  11. LEVEMIR [Concomitant]
     Indication: DIABETES MELLITUS
     Dosage: UNK
     Route: 065
  12. CLEXANE [Concomitant]
     Dosage: 0.4 ML, UNK
     Route: 065
  13. METOCLOPRAMIDE [Concomitant]
     Dosage: UNK
     Route: 065

REACTIONS (2)
  - Atrial fibrillation [Recovered/Resolved]
  - Sinusitis [Recovered/Resolved]
